FAERS Safety Report 19545035 (Version 2)
Quarter: 2021Q3

REPORT INFORMATION
  Report Type: Spontaneous
  Country: DE (occurrence: DE)
  Receive Date: 20210713
  Receipt Date: 20210713
  Transmission Date: 20211014
  Serious: Yes (Life-Threatening, Hospitalization, Other)
  Sender: FDA-Public Use
  Company Number: DE-BIOVITRUM-2021DE6772

PATIENT
  Age: 1 Year
  Sex: Female
  Weight: 10 kg

DRUGS (6)
  1. CETIRIZIN [Concomitant]
     Active Substance: CETIRIZINE HYDROCHLORIDE
     Indication: PRURITUS
     Route: 048
     Dates: start: 20200720
  2. IBUPROFEN. [Concomitant]
     Active Substance: IBUPROFEN
     Indication: PYREXIA
     Route: 048
     Dates: start: 20200821
  3. BICAVERA [Concomitant]
     Active Substance: CALCIUM CHLORIDE\DEXTROSE MONOHYDRATE\MAGNESIUM CHLORIDE\SODIUM BICARBONATE\SODIUM CHLORIDE
     Indication: PERITONEAL DIALYSIS
     Route: 033
     Dates: start: 20190725
  4. KINERET [Suspect]
     Active Substance: ANAKINRA
     Indication: STILL^S DISEASE
     Route: 058
     Dates: start: 20200903, end: 20210525
  5. OMEPRAZOL [Concomitant]
     Active Substance: OMEPRAZOLE
     Indication: VOMITING
     Route: 048
     Dates: start: 20200821
  6. VIGANTOL [Concomitant]
     Indication: VITAMIN D DEFICIENCY
     Dosage: 500 IE ONCE DAILY
     Route: 048

REACTIONS (4)
  - COVID-19 [Unknown]
  - Respiratory distress [Unknown]
  - Anaphylactic reaction [Unknown]
  - Alveolar proteinosis [Unknown]

NARRATIVE: CASE EVENT DATE: 20210525
